FAERS Safety Report 15332159 (Version 1)
Quarter: 2018Q3

REPORT INFORMATION
  Report Type: Spontaneous
  Country: IT (occurrence: IT)
  Receive Date: 20180829
  Receipt Date: 20180829
  Transmission Date: 20181010
  Serious: Yes (Hospitalization)
  Sender: FDA-Public Use
  Company Number: PHHY2018IT081935

PATIENT
  Age: 26 Year
  Sex: Female

DRUGS (3)
  1. GIZORD [Suspect]
     Active Substance: LAMOTRIGINE
     Indication: DRUG ABUSE
     Dosage: 42 DF, UNK
     Route: 048
     Dates: start: 20180718, end: 20180718
  2. ZONISAMIDE. [Concomitant]
     Active Substance: ZONISAMIDE
     Indication: PRODUCT USED FOR UNKNOWN INDICATION
     Dosage: 175 MG, QD
     Route: 048
  3. FYCOMPA [Suspect]
     Active Substance: PERAMPANEL
     Indication: DRUG ABUSE
     Dosage: 14 DF, UNK
     Route: 048
     Dates: start: 20180718, end: 20180718

REACTIONS (5)
  - Drug abuse [Unknown]
  - Sopor [Unknown]
  - Diplopia [Unknown]
  - Agitation [Unknown]
  - Ataxia [Unknown]

NARRATIVE: CASE EVENT DATE: 20180718
